FAERS Safety Report 16234080 (Version 1)
Quarter: 2019Q2

REPORT INFORMATION
  Report Type: Spontaneous
  Country: US (occurrence: US)
  Receive Date: 20190424
  Receipt Date: 20190424
  Transmission Date: 20190711
  Serious: No
  Sender: FDA-Public Use
  Company Number: US-TEVA-2019-US-1037697

PATIENT
  Sex: Female

DRUGS (1)
  1. ACTAVIS HYDROCODONE/APAP [Suspect]
     Active Substance: ACETAMINOPHEN\HYDROCODONE
     Indication: PAIN
     Dosage: FORM STRENGTH : 10 HYDROCODONE BITARTRATE/325 MG ACETAMINOPHEN

REACTIONS (1)
  - Drug ineffective [Unknown]
